FAERS Safety Report 19000794 (Version 19)
Quarter: 2023Q2

REPORT INFORMATION
  Report Type: Spontaneous
  Country: US (occurrence: US)
  Receive Date: 20210312
  Receipt Date: 20230607
  Transmission Date: 20230722
  Serious: Yes (Hospitalization, Other)
  Sender: FDA-Public Use
  Company Number: US-GLAXOSMITHKLINE-US2021AMR061148

PATIENT

DRUGS (17)
  1. ZEJULA [Suspect]
     Active Substance: NIRAPARIB
     Indication: Ovarian cancer
     Dosage: 200 MG, QD
     Dates: start: 20200301
  2. ZEJULA [Suspect]
     Active Substance: NIRAPARIB
     Dosage: 200 MG, QD
     Dates: start: 20210227, end: 20210322
  3. ZEJULA [Suspect]
     Active Substance: NIRAPARIB
     Dosage: 100 MG, QD
     Route: 048
     Dates: start: 2021
  4. ZEJULA [Suspect]
     Active Substance: NIRAPARIB
     Dosage: 100 MG, QD
     Route: 048
     Dates: start: 2021
  5. ZEJULA [Suspect]
     Active Substance: NIRAPARIB
     Dosage: 100 MG, QD
     Route: 048
  6. ZEJULA [Suspect]
     Active Substance: NIRAPARIB
     Dosage: 100 MG, QD
     Route: 048
  7. ZEJULA [Suspect]
     Active Substance: NIRAPARIB
     Dosage: 100 MG, QD
     Route: 048
  8. ZEJULA [Suspect]
     Active Substance: NIRAPARIB
     Dosage: 100 MG, QD
  9. ZEJULA [Suspect]
     Active Substance: NIRAPARIB
     Dosage: 100 MG, QD
     Route: 048
  10. ZEJULA [Suspect]
     Active Substance: NIRAPARIB
     Dosage: 100 MG, QD, EVERY EVENING
     Route: 048
  11. ZEJULA [Suspect]
     Active Substance: NIRAPARIB
     Dosage: 200 MG, QD
     Route: 048
     Dates: start: 202203
  12. ZEJULA [Suspect]
     Active Substance: NIRAPARIB
     Dosage: UNK UNK, Z (2 CAP BY MOUTH ON MON, WED, FRI AND 1 CAP BY MOUTH SUN, TUE, THUR, SAT)
     Route: 048
     Dates: start: 20220629
  13. ZEJULA [Suspect]
     Active Substance: NIRAPARIB
     Dosage: UNK, Z (200MG DAILY ON MON, WED, + FRI AND 100MG DAILY TUES, THURS, SAT AND SUN)
  14. ZEJULA [Suspect]
     Active Substance: NIRAPARIB
     Dosage: UNK, Z, (200 MG ALTERNATING WITH 100 MG EVERY OTHER DAY)
  15. ZEJULA [Suspect]
     Active Substance: NIRAPARIB
     Dosage: UNK, 200MG ONCE DAILY ON MON, WED, AND FRI AND 100MG DAILY ON TUES, THURS, SAT AND SUN
  16. ZEJULA [Suspect]
     Active Substance: NIRAPARIB
     Dosage: 200 MG, QD
     Route: 048
  17. GABAPENTIN [Concomitant]
     Active Substance: GABAPENTIN
     Indication: Hypoaesthesia
     Dosage: UNK

REACTIONS (16)
  - Neuropathy peripheral [Unknown]
  - Renal impairment [Unknown]
  - Small intestinal obstruction [Not Recovered/Not Resolved]
  - Urinary tract infection [Unknown]
  - Hypertension [Not Recovered/Not Resolved]
  - Heart rate increased [Recovering/Resolving]
  - Platelet count decreased [Not Recovered/Not Resolved]
  - Blood creatinine increased [Not Recovered/Not Resolved]
  - Laboratory test abnormal [Unknown]
  - Haemoglobin decreased [Unknown]
  - Anxiety [Not Recovered/Not Resolved]
  - Low density lipoprotein increased [Unknown]
  - Red blood cell count decreased [Unknown]
  - Carbohydrate antigen 125 increased [Not Recovered/Not Resolved]
  - Discomfort [Unknown]
  - Inappropriate schedule of product administration [Unknown]

NARRATIVE: CASE EVENT DATE: 20220307
